FAERS Safety Report 7022333-5 (Version None)
Quarter: 2010Q3

REPORT INFORMATION
  Report Type: 
  Country: None (occurrence: None)
  Receive Date: 20100930
  Receipt Date: 20100921
  Transmission Date: 20110219
  Serious: Yes (Other)
  Sender: FDA-Public Use
  Company Number: US-SANOFI-AVENTIS-2010SA042544

PATIENT
  Age: 91 Year
  Sex: Male
  Weight: 75 kg

DRUGS (3)
  1. MULTAQ [Suspect]
     Route: 048
     Dates: start: 20100215, end: 20100720
  2. PLAVIX [Concomitant]
  3. IMDUR [Concomitant]

REACTIONS (3)
  - ARRHYTHMIA [None]
  - DECREASED APPETITE [None]
  - DEMENTIA [None]
